FAERS Safety Report 12249346 (Version 2)
Quarter: 2016Q3

REPORT INFORMATION
  Report Type: Spontaneous
  Country: KR (occurrence: KR)
  Receive Date: 20160408
  Receipt Date: 20160728
  Transmission Date: 20161109
  Serious: Yes (Hospitalization)
  Sender: FDA-Public Use
  Company Number: KR-TAKEDA-2016MPI002546

PATIENT
  Age: 67 Year
  Sex: Female
  Weight: 54 kg

DRUGS (7)
  1. VELCADE [Suspect]
     Active Substance: BORTEZOMIB
     Indication: PLASMA CELL MYELOMA
     Dosage: 2 MG, UNK
     Route: 058
     Dates: start: 20151020, end: 20151030
  2. PREDNISONE. [Suspect]
     Active Substance: PREDNISONE
     Indication: PLASMA CELL MYELOMA
     Dosage: 90 MG, UNK
     Route: 048
     Dates: start: 20151021
  3. DARATUMUMAB [Suspect]
     Active Substance: DARATUMUMAB
     Indication: PLASMA CELL MYELOMA
     Dosage: 896 MG, 1/WEEK
     Route: 042
     Dates: start: 20151020, end: 20151027
  4. VELCADE [Suspect]
     Active Substance: BORTEZOMIB
     Dosage: 1.5 MG, UNK
     Route: 058
     Dates: start: 20151113
  5. MELPHALAN [Suspect]
     Active Substance: MELPHALAN
     Indication: PLASMA CELL MYELOMA
     Dosage: 14 MG, UNK
     Route: 048
     Dates: start: 20151020
  6. DEXAMETHASONE. [Suspect]
     Active Substance: DEXAMETHASONE
     Indication: PLASMA CELL MYELOMA
     Dosage: 20 MG, 1/WEEK
     Route: 042
     Dates: start: 20151020
  7. DARATUMUMAB [Suspect]
     Active Substance: DARATUMUMAB
     Dosage: 896 MG, 1/WEEK
     Route: 042
     Dates: start: 20151113

REACTIONS (6)
  - Syncope [Recovered/Resolved]
  - Chills [Unknown]
  - Respiratory arrest [Unknown]
  - Vomiting [Unknown]
  - Cough [Unknown]
  - Eye movement disorder [Unknown]

NARRATIVE: CASE EVENT DATE: 20151020
